FAERS Safety Report 19246136 (Version 1)
Quarter: 2021Q2

REPORT INFORMATION
  Report Type: Spontaneous
  Country: GR (occurrence: GR)
  Receive Date: 20210512
  Receipt Date: 20210512
  Transmission Date: 20210717
  Serious: Yes (Hospitalization, Other)
  Sender: FDA-Public Use
  Company Number: GR-AMGEN-GRCSP2021069672

PATIENT
  Sex: Female
  Weight: 98 kg

DRUGS (26)
  1. DOCETAXEL. [Suspect]
     Active Substance: DOCETAXEL
     Indication: BREAST CANCER
     Dosage: 75 MILLIGRAM/KILOGRAM, Q3WK, MOST RECENT DOSE PRIOR TO THE EVENT: 17/NOV/2016
     Route: 042
     Dates: start: 20161018
  2. GEMCITABINE. [Suspect]
     Active Substance: GEMCITABINE
     Indication: BREAST CANCER
     Dosage: 2000 MILLIGRAM, MOST RECENT DOSE PRIOR TO THE EVENT: 10/MAY/2019
     Route: 042
     Dates: start: 20190510, end: 20190703
  3. ZOMETA [Concomitant]
     Active Substance: ZOLEDRONIC ACID
     Dosage: UNK
     Dates: start: 20161018
  4. CALCIORAL D3 [Concomitant]
     Active Substance: CALCIUM CARBONATE\CHOLECALCIFEROL
     Dosage: UNK
     Dates: start: 20171218
  5. CIPROXIN [CIPROFLOXACIN] [Concomitant]
     Active Substance: CIPROFLOXACIN
     Indication: PYREXIA
     Dosage: UNK
     Dates: start: 20190503, end: 20190510
  6. LOSEC [Concomitant]
     Active Substance: OMEPRAZOLE
     Dosage: UNK
     Dates: start: 20190703, end: 20190709
  7. DOCETAXEL. [Suspect]
     Active Substance: DOCETAXEL
     Dosage: 160 MILLIGRAM, Q3WK
     Route: 042
     Dates: start: 20161025, end: 20161025
  8. GRANULOKINE [Concomitant]
     Active Substance: FILGRASTIM
     Indication: FEBRILE NEUTROPENIA
     Dosage: UNK
     Dates: start: 20161102, end: 20161104
  9. OMEPRAZOLE. [Concomitant]
     Active Substance: OMEPRAZOLE
     Dosage: UNK
     Dates: start: 20190703, end: 20190709
  10. PRIMPERAN [Concomitant]
     Active Substance: METOCLOPRAMIDE HYDROCHLORIDE
     Indication: ABDOMINAL PAIN
     Dosage: UNK
     Dates: start: 20161102, end: 20161104
  11. CAPECITABINE. [Suspect]
     Active Substance: CAPECITABINE
     Indication: BREAST CANCER
     Dosage: 2000 MILLIGRAM, 0.5 DAY, MOST RECENT DOSE PRIOR TO THE EVENT ON 22/OCT/2018
     Route: 048
     Dates: start: 20180618, end: 20180709
  12. LAPATINIB [Suspect]
     Active Substance: LAPATINIB
     Indication: BREAST CANCER
     Dosage: 1250 MILLIGRAM, QD
     Route: 048
     Dates: start: 20180611
  13. LAPATINIB [Suspect]
     Active Substance: LAPATINIB
     Dosage: 1250 MILLIGRAM, QD (MOST RECENT DOSE PRIOR TO THE EVENT: 14/NOV/2018)
     Route: 048
     Dates: start: 20180618, end: 20180709
  14. T4 [Concomitant]
     Active Substance: LEVOTHYROXINE
     Dosage: UNK
     Dates: start: 20090615
  15. CIPROXIN [CIPROFLOXACIN] [Concomitant]
     Active Substance: CIPROFLOXACIN
     Dosage: UNK
     Dates: start: 20190705, end: 20190709
  16. STABILANOL [Concomitant]
     Dosage: UNK
     Dates: start: 20180205, end: 20180224
  17. TRASTUZUMAB. [Suspect]
     Active Substance: TRASTUZUMAB
     Indication: BREAST CANCER
     Dosage: 8 MILLIGRAM/KILOGRAM, Q3WK
     Route: 042
     Dates: start: 20161018
  18. TRASTUZUMAB. [Suspect]
     Active Substance: TRASTUZUMAB
     Dosage: 780 MILLIGRAM, Q3WK, MOST RECENT DOSE PRIOR TO THE EVENT: 10/MAY/2019
     Route: 042
     Dates: start: 20161025, end: 20161025
  19. PERTUZUMAB. [Suspect]
     Active Substance: PERTUZUMAB
     Indication: BREAST CANCER
     Dosage: 840 MILLIGRAM/KILOGRAM, Q3WK
     Route: 042
     Dates: start: 20161018
  20. TRASTUZUMAB EMTANSINE [Suspect]
     Active Substance: ADO-TRASTUZUMAB EMTANSINE
     Indication: BREAST CANCER
     Dosage: 270 MILLIGRAM, Q3WK
     Route: 042
     Dates: start: 20170726, end: 20180504
  21. LAMISIL [Concomitant]
     Active Substance: TERBINAFINE HYDROCHLORIDE
     Indication: ONYCHOMYCOSIS
     Dosage: UNK
     Dates: start: 20170404, end: 20170517
  22. PRIMPERAN [Concomitant]
     Active Substance: METOCLOPRAMIDE HYDROCHLORIDE
     Dosage: UNK
     Dates: start: 20161106, end: 20161110
  23. STABILANOL [Concomitant]
     Indication: ONYCHOMYCOSIS
     Dosage: UNK
     Dates: start: 20171218, end: 20180106
  24. LONALGAL [Concomitant]
     Active Substance: ACETAMINOPHEN\CODEINE PHOSPHATE
     Dosage: UNK
  25. BILARGEN [Concomitant]
     Indication: RASH
     Dosage: UNK
     Dates: start: 20180601, end: 20180625
  26. VONCON [Concomitant]
     Active Substance: VANCOMYCIN HYDROCHLORIDE
     Dosage: UNK
     Dates: start: 20190706, end: 20190709

REACTIONS (4)
  - Off label use [Unknown]
  - Platelet count decreased [Recovered/Resolved]
  - Device related infection [Recovered/Resolved]
  - Peripheral sensory neuropathy [Recovered/Resolved]

NARRATIVE: CASE EVENT DATE: 20180115
